FAERS Safety Report 26134876 (Version 1)
Quarter: 2025Q4

REPORT INFORMATION
  Report Type: Spontaneous
  Country: US (occurrence: None)
  Receive Date: 20251208
  Receipt Date: 20251208
  Transmission Date: 20260118
  Serious: No
  Sender: FDA-CTU
  Company Number: None

PATIENT
  Sex: Female

DRUGS (1)
  1. SERTRALINE HYDROCHLORIDE [Suspect]
     Active Substance: SERTRALINE HYDROCHLORIDE

REACTIONS (7)
  - Nausea [None]
  - Product communication issue [None]
  - Product label issue [None]
  - Malaise [None]
  - Heart rate increased [None]
  - Overdose [None]
  - Product communication issue [None]

NARRATIVE: CASE EVENT DATE: 20250924
